FAERS Safety Report 5588221-6 (Version None)
Quarter: 2008Q1

REPORT INFORMATION
  Report Type: 
  Country: None (occurrence: None)
  Receive Date: 20080108
  Receipt Date: 20071224
  Transmission Date: 20080703
  Serious: Yes (Hospitalization)
  Sender: FDA-Public Use
  Company Number: ADE2007-0095

PATIENT
  Age: 61 Year
  Sex: Female

DRUGS (5)
  1. METFORMIN HYDROCHLORIDE [Suspect]
     Indication: DIABETES MELLITUS
     Dosage: 1 GRAM - PO
     Route: 048
     Dates: start: 20070618, end: 20070717
  2. FUROSEMIDE [Concomitant]
  3. GLICLAZIDE [Concomitant]
  4. RAMIPRIL [Concomitant]
  5. TYROXINE [Concomitant]

REACTIONS (4)
  - ANAEMIA [None]
  - DYSPNOEA [None]
  - FLUID RETENTION [None]
  - RED BLOOD CELL SEDIMENTATION RATE INCREASED [None]
